FAERS Safety Report 7006971-1 (Version None)
Quarter: 2010Q3

REPORT INFORMATION
  Report Type: 
  Country: None (occurrence: None)
  Receive Date: 20100922
  Receipt Date: 20100913
  Transmission Date: 20110219
  Serious: Yes (Other)
  Sender: FDA-Public Use
  Company Number: SE-EISAI INC.-E2090-01321-SPO-SE

PATIENT
  Sex: Female

DRUGS (3)
  1. ZONEGRAN [Suspect]
     Indication: EPILEPSY
     Dosage: UNKNOWN
     Route: 048
  2. ZONEGRAN [Suspect]
     Route: 048
  3. KEPPRA [Concomitant]
     Indication: EPILEPSY

REACTIONS (3)
  - ESSENTIAL THROMBOCYTHAEMIA [None]
  - LENTIGO [None]
  - SKIN DISCOLOURATION [None]
